FAERS Safety Report 9133744 (Version 1)
Quarter: 2013Q1

REPORT INFORMATION
  Report Type: Spontaneous
  Country: GB (occurrence: GB)
  Receive Date: 20130302
  Receipt Date: 20130302
  Transmission Date: 20140127
  Serious: Yes (Disabling, Other)
  Sender: FDA-Public Use
  Company Number: GB-TEVA-388249ISR

PATIENT
  Age: 38 Year
  Sex: Male
  Weight: 105 kg

DRUGS (4)
  1. RISPERIDONE [Suspect]
     Indication: SCHIZOPHRENIA, PARANOID TYPE
     Route: 048
     Dates: start: 20121126, end: 20130115
  2. PARACETAMOL [Concomitant]
  3. IBUPROFEN [Concomitant]
  4. NICOTINE [Concomitant]

REACTIONS (3)
  - Myalgia [Recovering/Resolving]
  - Blood creatine phosphokinase increased [Recovering/Resolving]
  - Mobility decreased [Unknown]
